FAERS Safety Report 25547291 (Version 2)
Quarter: 2025Q3

REPORT INFORMATION
  Report Type: Spontaneous
  Country: US (occurrence: US)
  Receive Date: 20250714
  Receipt Date: 20250807
  Transmission Date: 20251021
  Serious: No
  Sender: BAUSCH AND LOMB
  Company Number: US-BAUSCH-BL-2025-007883

PATIENT
  Sex: Female

DRUGS (3)
  1. TRULANCE [Suspect]
     Active Substance: PLECANATIDE
     Indication: Irritable bowel syndrome
     Route: 065
     Dates: start: 202506, end: 202506
  2. TRULANCE [Suspect]
     Active Substance: PLECANATIDE
     Route: 065
     Dates: start: 202506
  3. MULTAQ [Concomitant]
     Active Substance: DRONEDARONE
     Indication: Product used for unknown indication
     Route: 065

REACTIONS (3)
  - Proctalgia [Unknown]
  - Gastrointestinal motility disorder [Unknown]
  - Diarrhoea [Recovered/Resolved]

NARRATIVE: CASE EVENT DATE: 20250601
